FAERS Safety Report 7397637-7 (Version None)
Quarter: 2011Q2

REPORT INFORMATION
  Report Type: 
  Country: None (occurrence: None)
  Receive Date: 20110406
  Receipt Date: 20110401
  Transmission Date: 20111010
  Serious: Yes (Other)
  Sender: FDA-Public Use
  Company Number: US-PFIZER INC-2010071177

PATIENT
  Sex: Female
  Weight: 106.6 kg

DRUGS (5)
  1. LISINOPRIL [Concomitant]
     Indication: NEPHROPATHY
     Dosage: 10 MG, 1X/DAY
  2. SYNTHROID [Concomitant]
     Indication: HYPOTHYROIDISM
     Dosage: 0.2 MG, UNK
  3. LASIX [Concomitant]
     Dosage: UNK
  4. KLOR-CON [Concomitant]
     Dosage: 20 MG DAILY
  5. ANTIVERT [Suspect]
     Indication: MENIERE'S DISEASE
     Dosage: UNK
     Dates: start: 19890101

REACTIONS (6)
  - GOUT [None]
  - FALL [None]
  - DIZZINESS [None]
  - BLOOD CHOLESTEROL INCREASED [None]
  - BLOOD TRIGLYCERIDES INCREASED [None]
  - DIABETES MELLITUS [None]
